FAERS Safety Report 14549062 (Version 7)
Quarter: 2021Q1

REPORT INFORMATION
  Report Type: Spontaneous
  Country: US (occurrence: US)
  Receive Date: 20180219
  Receipt Date: 20210309
  Transmission Date: 20210419
  Serious: No
  Sender: FDA-Public Use
  Company Number: US-PFIZER INC-2018065599

PATIENT
  Age: 64 Year
  Sex: Female
  Weight: 94.79 kg

DRUGS (3)
  1. IBRANCE [Suspect]
     Active Substance: PALBOCICLIB
     Indication: BREAST CANCER FEMALE
     Dosage: 125 MG, CYCLIC (DAY 1?21 Q 28 DAYS)
     Route: 048
     Dates: start: 20170328
  2. IBRANCE [Suspect]
     Active Substance: PALBOCICLIB
     Dosage: 125 MG, CYCLIC (DAY 1?21 Q 28 DAYS)
     Route: 048
     Dates: end: 201806
  3. IBRANCE [Suspect]
     Active Substance: PALBOCICLIB
     Dosage: 125 MG, CYCLIC (125 MG QD X 21 DAYS)
     Dates: start: 20210204

REACTIONS (9)
  - Weight increased [Unknown]
  - Alopecia [Not Recovered/Not Resolved]
  - Nail growth abnormal [Not Recovered/Not Resolved]
  - Tinnitus [Not Recovered/Not Resolved]
  - Peripheral swelling [Recovered/Resolved]
  - Joint swelling [Recovered/Resolved]
  - Paraesthesia [Unknown]
  - Nail disorder [Not Recovered/Not Resolved]
  - Product dose omission issue [Unknown]

NARRATIVE: CASE EVENT DATE: 20170328
